FAERS Safety Report 15881054 (Version 1)
Quarter: 2019Q1

REPORT INFORMATION
  Report Type: Spontaneous
  Country: US (occurrence: US)
  Receive Date: 20190128
  Receipt Date: 20190128
  Transmission Date: 20190417
  Serious: Yes (Other)
  Sender: FDA-Public Use
  Company Number: US-SA-2019SA021320

PATIENT
  Age: 70 Year
  Sex: Male
  Weight: 77.1 kg

DRUGS (8)
  1. ENTRESTO [Concomitant]
     Active Substance: SACUBITRIL\VALSARTAN
     Dosage: 1 TAB, BID
     Route: 048
     Dates: start: 20181107
  2. ASPIRIN [ACETYLSALICYLIC ACID] [Concomitant]
     Active Substance: ASPIRIN
     Dosage: 1 TAB, QD
     Route: 048
     Dates: start: 20180724
  3. VITAMIN D3 [Concomitant]
     Active Substance: CHOLECALCIFEROL
     Dosage: 1 CAP, BID
     Route: 048
     Dates: start: 20180724
  4. WARFARIN [Concomitant]
     Active Substance: WARFARIN
     Dosage: 1 TAB, QD
     Route: 048
     Dates: start: 20180724
  5. CLOPIDOGREL [Concomitant]
     Active Substance: CLOPIDOGREL BISULFATE
     Dosage: 1 TAB, QD
     Route: 048
     Dates: start: 20180724
  6. FABRAZYME [Suspect]
     Active Substance: AGALSIDASE BETA
     Indication: FABRY^S DISEASE
     Dosage: 80 MG, QOW
     Route: 041
     Dates: start: 20180808
  7. CARVEDILOL. [Concomitant]
     Active Substance: CARVEDILOL
     Dosage: 1 TAB, QD
     Route: 048
     Dates: start: 20180724
  8. ALENDRONATE [Concomitant]
     Active Substance: ALENDRONATE SODIUM
     Dosage: 1 TAB, QW
     Route: 048
     Dates: start: 20180724

REACTIONS (1)
  - Heart transplant [Unknown]

NARRATIVE: CASE EVENT DATE: 20190121
